FAERS Safety Report 21157647 (Version 1)
Quarter: 2022Q3

REPORT INFORMATION
  Report Type: Report from Study
  Country: US (occurrence: US)
  Receive Date: 20220801
  Receipt Date: 20220801
  Transmission Date: 20221026
  Serious: Yes (Other)
  Sender: FDA-Public Use
  Company Number: US-BRISTOL-MYERS SQUIBB COMPANY-2022-079200

PATIENT
  Age: 60 Year
  Sex: Female
  Weight: 53.52 kg

DRUGS (4)
  1. REVLIMID [Suspect]
     Active Substance: LENALIDOMIDE
     Indication: Plasma cell myeloma in remission
     Route: 048
     Dates: start: 201808
  2. MORPHINE SULFATE [Concomitant]
     Active Substance: MORPHINE SULFATE
     Indication: Product used for unknown indication
     Route: 065
  3. ASPIRINE EC [Concomitant]
     Indication: Product used for unknown indication
     Route: 065
  4. NUCYNTA [Concomitant]
     Active Substance: TAPENTADOL HYDROCHLORIDE
     Indication: Product used for unknown indication
     Route: 065

REACTIONS (5)
  - Pain in extremity [Unknown]
  - Hypoaesthesia [Unknown]
  - Fatigue [Unknown]
  - COVID-19 [Unknown]
  - White blood cell count decreased [Unknown]
